FAERS Safety Report 6262599-2 (Version None)
Quarter: 2009Q3

REPORT INFORMATION
  Report Type: 
  Country: None (occurrence: None)
  Receive Date: 20090709
  Receipt Date: 20090701
  Transmission Date: 20100115
  Serious: Yes (Hospitalization)
  Sender: FDA-Public Use
  Company Number: PL-AVENTIS-200916578GDDC

PATIENT
  Age: 65 Year
  Sex: Female
  Weight: 79 kg

DRUGS (1)
  1. ARAVA [Suspect]
     Route: 048
     Dates: start: 20081001, end: 20090301

REACTIONS (3)
  - DYSPHONIA [None]
  - LARYNGITIS [None]
  - NASAL CONGESTION [None]
